FAERS Safety Report 9640054 (Version 1)
Quarter: 2013Q4

REPORT INFORMATION
  Report Type: Report from Study
  Country: AR (occurrence: AR)
  Receive Date: 20131023
  Receipt Date: 20131023
  Transmission Date: 20140711
  Serious: Yes (Hospitalization)
  Sender: FDA-Public Use
  Company Number: PHHY2013AR118916

PATIENT
  Age: 11 Year
  Sex: Male

DRUGS (1)
  1. TOBI PODHALER [Suspect]
     Indication: CYSTIC FIBROSIS
     Dosage: 8 CAPSULE, UNK
     Dates: start: 20121016

REACTIONS (3)
  - Increased bronchial secretion [Recovering/Resolving]
  - Increased upper airway secretion [Recovering/Resolving]
  - Dyspnoea [Recovering/Resolving]
